FAERS Safety Report 16636473 (Version 5)
Quarter: 2019Q4

REPORT INFORMATION
  Report Type: Spontaneous
  Country: US (occurrence: US)
  Receive Date: 20190726
  Receipt Date: 20191216
  Transmission Date: 20200122
  Serious: No
  Sender: FDA-Public Use
  Company Number: US-PFIZER INC-2019322613

PATIENT
  Age: 33 Year
  Sex: Female
  Weight: 50 kg

DRUGS (1)
  1. ELELYSO [Suspect]
     Active Substance: TALIGLUCERASE ALFA
     Dosage: 3600 IU, UNK
     Dates: start: 20191204

REACTIONS (5)
  - Irritability [Unknown]
  - Chitotriosidase increased [Unknown]
  - Pain [Unknown]
  - Hiatus hernia [Unknown]
  - Weight increased [Unknown]
